FAERS Safety Report 9914742 (Version 1)
Quarter: 2014Q1

REPORT INFORMATION
  Report Type: Spontaneous
  Country: DE (occurrence: DE)
  Receive Date: 20140220
  Receipt Date: 20140220
  Transmission Date: 20141002
  Serious: Yes (Other)
  Sender: FDA-Public Use
  Company Number: DE-JNJFOC-20140208232

PATIENT
  Age: 73 Year
  Sex: Female

DRUGS (4)
  1. YONDELIS [Suspect]
     Indication: MALIGNANT PERITONEAL NEOPLASM
     Dosage: CYCLE TWO, 50% OF CYCLE ONE DOSE
     Route: 042
     Dates: start: 2013, end: 2013
  2. YONDELIS [Suspect]
     Indication: MALIGNANT PERITONEAL NEOPLASM
     Dosage: CYCLE ONE
     Route: 042
     Dates: start: 2013, end: 2013
  3. CAELYX [Suspect]
     Indication: MALIGNANT PERITONEAL NEOPLASM
     Dosage: CYCLE TWO, 50% OF CYCLE ONE DOSE
     Route: 042
     Dates: start: 2013, end: 2013
  4. CAELYX [Suspect]
     Indication: MALIGNANT PERITONEAL NEOPLASM
     Dosage: CYCLE ONE
     Route: 042
     Dates: start: 2013, end: 2013

REACTIONS (2)
  - Hepatic enzyme increased [Unknown]
  - Fatigue [Unknown]
